FAERS Safety Report 7522464-7 (Version None)
Quarter: 2011Q2

REPORT INFORMATION
  Report Type: 
  Country: None (occurrence: None)
  Receive Date: 20110525
  Receipt Date: 20110510
  Transmission Date: 20111010
  Serious: Yes (Death, Hospitalization, Other)
  Sender: FDA-Public Use
  Company Number: 2011MA005749

PATIENT
  Age: 58 Year
  Sex: Female

DRUGS (2)
  1. CYCLOPHOSPHAMIDE [Concomitant]
  2. FLUDARABINE PHOSPHATE [Suspect]
     Indication: BONE MARROW TRANSPLANT
     Dosage: 40 MG/M2;OD

REACTIONS (12)
  - HYPERREFLEXIA [None]
  - LETHARGY [None]
  - NEUROTOXICITY [None]
  - CENTRAL NERVOUS SYSTEM LESION [None]
  - BONE MARROW TRANSPLANT [None]
  - BLINDNESS [None]
  - UNRESPONSIVE TO STIMULI [None]
  - NUCLEAR MAGNETIC RESONANCE IMAGING BRAIN ABNORMAL [None]
  - PUPILLARY REFLEX IMPAIRED [None]
  - CONFUSIONAL STATE [None]
  - APHASIA [None]
  - MUSCLE SPASTICITY [None]
